FAERS Safety Report 18602742 (Version 1)
Quarter: 2020Q4

REPORT INFORMATION
  Report Type: Spontaneous
  Country: US (occurrence: US)
  Receive Date: 20201210
  Receipt Date: 20201210
  Transmission Date: 20210114
  Serious: No
  Sender: FDA-Public Use
  Company Number: US-PERRIGO-20US014307

PATIENT
  Sex: Male
  Weight: 104.31 kg

DRUGS (4)
  1. ALBUTEROL SULFATE. [Suspect]
     Active Substance: ALBUTEROL SULFATE
     Indication: DYSPNOEA
     Dosage: UNKNOWN, Q 4 TO 6 HRS, PRN
     Route: 055
     Dates: start: 202009, end: 20201001
  2. BREO ELLIPTA [Concomitant]
     Active Substance: FLUTICASONE FUROATE\VILANTEROL TRIFENATATE
     Indication: DYSPNOEA
     Dosage: UNK
     Route: 065
  3. OTHER CARDIAC PREPARATIONS [Concomitant]
     Active Substance: UNSPECIFIED INGREDIENT
     Indication: SURGERY
     Dosage: UNK
     Route: 065
     Dates: start: 2010
  4. ALBUTEROL SULFATE. [Suspect]
     Active Substance: ALBUTEROL SULFATE
     Dosage: 180 MCG, Q 4 TO 6 HRS, PRN
     Route: 055
     Dates: start: 20201001

REACTIONS (4)
  - Dyspnoea [Recovered/Resolved]
  - Device delivery system issue [Recovered/Resolved]
  - Drug administered in wrong device [Recovered/Resolved]
  - Accidental exposure to product [Recovered/Resolved]

NARRATIVE: CASE EVENT DATE: 2020
